FAERS Safety Report 24181956 (Version 2)
Quarter: 2024Q3

REPORT INFORMATION
  Report Type: Spontaneous
  Country: JP (occurrence: JP)
  Receive Date: 20240807
  Receipt Date: 20240813
  Transmission Date: 20241016
  Serious: Yes (Life-Threatening, Hospitalization, Other)
  Sender: CELLTRION
  Company Number: JP-JPNKAYAKU-2024JPNK041066

PATIENT

DRUGS (4)
  1. TRASTUZUMAB [Suspect]
     Active Substance: TRASTUZUMAB
     Indication: Invasive ductal breast carcinoma
     Dosage: POSTOPERATIVELY, TRASTUZUMAB + PERTUZUMAB THERAPY WAS CONTINUED
     Route: 065
  2. TRASTUZUMAB [Suspect]
     Active Substance: TRASTUZUMAB
     Indication: Endometrial cancer stage I
  3. PERTUZUMAB [Concomitant]
     Active Substance: PERTUZUMAB
     Indication: Invasive ductal breast carcinoma
     Dosage: POSTOPERATIVELY, TRASTUZUMAB + PERTUZUMAB THERAPY WAS CONTINUED
     Route: 065
  4. PERTUZUMAB [Concomitant]
     Active Substance: PERTUZUMAB
     Indication: Uterine cancer

REACTIONS (3)
  - Cardiac failure [Recovering/Resolving]
  - Myocardial fibrosis [Unknown]
  - Intentional product use issue [Unknown]
